FAERS Safety Report 7785432-6 (Version None)
Quarter: 2011Q3

REPORT INFORMATION
  Report Type: 
  Country: None (occurrence: None)
  Receive Date: 20110929
  Receipt Date: 20110914
  Transmission Date: 20111222
  Serious: Yes (Other)
  Sender: FDA-Public Use
  Company Number: CA-BAYER-2011-086480

PATIENT
  Age: 22 Year
  Sex: Female
  Weight: 63 kg

DRUGS (2)
  1. YAZ [Suspect]
     Dosage: 1 DF, QD
     Route: 048
  2. YASMIN [Suspect]
     Dosage: 1 DF, QD
     Route: 048

REACTIONS (6)
  - ALOPECIA [None]
  - FATIGUE [None]
  - ONYCHOMADESIS [None]
  - AMENORRHOEA [None]
  - DIZZINESS [None]
  - VERTIGO [None]
